FAERS Safety Report 18985131 (Version 1)
Quarter: 2021Q1

REPORT INFORMATION
  Report Type: Spontaneous
  Country: US (occurrence: US)
  Receive Date: 20210309
  Receipt Date: 20210309
  Transmission Date: 20210420
  Serious: No
  Sender: FDA-Public Use
  Company Number: US-AMGEN INC.-USASP2021034997

PATIENT
  Age: 61 Year
  Sex: Female

DRUGS (4)
  1. AIMOVIG [Suspect]
     Active Substance: ERENUMAB-AOOE
     Dosage: 70 MILLIGRAM (EVERY 28 DAYS)
     Route: 065
     Dates: start: 2020
  2. AJOVY [Concomitant]
     Active Substance: FREMANEZUMAB-VFRM
     Indication: MIGRAINE
     Dosage: UNK
     Route: 065
     Dates: start: 2020, end: 2020
  3. AIMOVIG [Suspect]
     Active Substance: ERENUMAB-AOOE
     Indication: MIGRAINE
     Dosage: 70 MILLIGRAM (EVERY 28 DAYS)
     Route: 065
     Dates: start: 2020, end: 2020
  4. INGREZZA [Concomitant]
     Active Substance: VALBENAZINE
     Indication: TARDIVE DYSKINESIA
     Dosage: UNK
     Route: 065

REACTIONS (4)
  - Injection site indentation [Recovered/Resolved]
  - Device difficult to use [Unknown]
  - Drug ineffective [Unknown]
  - Wrong technique in product usage process [Unknown]

NARRATIVE: CASE EVENT DATE: 2020
